FAERS Safety Report 5829625-3 (Version None)
Quarter: 2008Q3

REPORT INFORMATION
  Report Type: 
  Country: None (occurrence: None)
  Receive Date: 20080731
  Receipt Date: 20080724
  Transmission Date: 20090109
  Serious: Yes (Hospitalization, Other)
  Sender: FDA-Public Use
  Company Number: US-PFIZER INC-2008062436

PATIENT
  Sex: Female
  Weight: 92.5 kg

DRUGS (4)
  1. SUTENT [Suspect]
     Indication: METASTATIC RENAL CELL CARCINOMA
  2. ZOFRAN [Concomitant]
  3. COMPAZINE [Concomitant]
  4. ANTIHYPERTENSIVES [Concomitant]

REACTIONS (9)
  - CENTRAL NERVOUS SYSTEM LESION [None]
  - CONSTIPATION [None]
  - DYSPEPSIA [None]
  - EYE PRURITUS [None]
  - HEADACHE [None]
  - HYPERTENSIVE ENCEPHALOPATHY [None]
  - MENTAL STATUS CHANGES [None]
  - NAUSEA [None]
  - VOMITING [None]
